FAERS Safety Report 16036551 (Version 1)
Quarter: 2019Q1

REPORT INFORMATION
  Report Type: Spontaneous
  Country: US (occurrence: US)
  Receive Date: 20190305
  Receipt Date: 20190305
  Transmission Date: 20190418
  Serious: No
  Sender: FDA-Public Use
  Company Number: US-DSJP-DSU-2019-107230

PATIENT

DRUGS (4)
  1. AZOR [Suspect]
     Active Substance: AMLODIPINE BESYLATE\OLMESARTAN MEDOXOMIL
     Dosage: 0.5 DF, BID (1/2 TABLET)
     Route: 048
     Dates: start: 201902
  2. AZOR [Suspect]
     Active Substance: AMLODIPINE BESYLATE\OLMESARTAN MEDOXOMIL
     Dosage: 0.5 DF, BID (1/2 TABLET)
     Route: 048
     Dates: start: 2017, end: 201902
  3. AZOR [Suspect]
     Active Substance: AMLODIPINE BESYLATE\OLMESARTAN MEDOXOMIL
     Dosage: 0.5 DF, BID (1/2 TABLET)
     Route: 048
     Dates: start: 2009, end: 2017
  4. AZOR [Suspect]
     Active Substance: AMLODIPINE BESYLATE\OLMESARTAN MEDOXOMIL
     Indication: HYPERTENSION
     Dosage: 1 DF, QD
     Route: 048
     Dates: start: 2009, end: 2009

REACTIONS (2)
  - No adverse event [Unknown]
  - Product administration error [Unknown]

NARRATIVE: CASE EVENT DATE: 2009
